FAERS Safety Report 4825468-8 (Version None)
Quarter: 2005Q4

REPORT INFORMATION
  Report Type: 
  Country: None (occurrence: None)
  Receive Date: 20051111
  Receipt Date: 20051102
  Transmission Date: 20060501
  Serious: Yes (Other)
  Sender: FDA-Public Use
  Company Number: JP-AVENTIS-200513285JP

PATIENT
  Age: 17 Year
  Sex: Female

DRUGS (1)
  1. LASIX [Suspect]

REACTIONS (2)
  - BONE DENSITY DECREASED [None]
  - HYPERPARATHYROIDISM [None]
